FAERS Safety Report 9888950 (Version 1)
Quarter: 2014Q1

REPORT INFORMATION
  Report Type: Spontaneous
  Country: CA (occurrence: CA)
  Receive Date: 20140211
  Receipt Date: 20140211
  Transmission Date: 20141002
  Serious: Yes (Other)
  Sender: FDA-Public Use
  Company Number: CA-ASTRAZENECA-2014SE08006

PATIENT
  Age: 13 Year
  Sex: Male
  Weight: 93 kg

DRUGS (2)
  1. SEROQUEL [Suspect]
     Route: 048
  2. PROZAC [Suspect]
     Route: 048

REACTIONS (1)
  - Lens disorder [Recovered/Resolved]
